FAERS Safety Report 7011744-X (Version None)
Quarter: 2010Q3

REPORT INFORMATION
  Report Type: 
  Country: None (occurrence: None)
  Receive Date: 20100923
  Receipt Date: 20090528
  Transmission Date: 20110219
  Serious: No
  Sender: FDA-Public Use
  Company Number: US-WYE-H09514109

PATIENT
  Sex: Female

DRUGS (4)
  1. PREMARIN [Suspect]
  2. ZYRTEC [Suspect]
  3. PRILOSEC [Suspect]
  4. TOPROL-XL [Suspect]

REACTIONS (1)
  - NASAL CONGESTION [None]
